FAERS Safety Report 7224196-1 (Version None)
Quarter: 2011Q1

REPORT INFORMATION
  Report Type: 
  Country: None (occurrence: None)
  Receive Date: 20110113
  Receipt Date: 20110110
  Transmission Date: 20110831
  Serious: Yes (Other)
  Sender: FDA-Public Use
  Company Number: US-BAYER-2011-003468

PATIENT
  Sex: Female

DRUGS (2)
  1. YASMIN [Suspect]
     Indication: PRODUCT USED FOR UNKNOWN INDICATION
     Dosage: UNK
     Dates: start: 20041101, end: 20061101
  2. OCELLA [Suspect]
     Indication: PRODUCT USED FOR UNKNOWN INDICATION
     Dosage: UNK
     Dates: start: 20081101, end: 20090801

REACTIONS (6)
  - BILIARY DYSKINESIA [None]
  - EMOTIONAL DISTRESS [None]
  - ANXIETY [None]
  - ABDOMINAL PAIN [None]
  - ARRHYTHMIA [None]
  - CHEST PAIN [None]
